FAERS Safety Report 24230742 (Version 1)
Quarter: 2024Q3

REPORT INFORMATION
  Report Type: Other
  Country: UG (occurrence: UG)
  Receive Date: 20240821
  Receipt Date: 20240821
  Transmission Date: 20241017
  Serious: Yes (Hospitalization, Disabling)
  Sender: DEXCEL
  Company Number: UG-DEXPHARM-2024-2866

PATIENT
  Age: 33 Year
  Sex: Female

DRUGS (5)
  1. TENOFOVIR [Suspect]
     Active Substance: TENOFOVIR
     Indication: HIV infection
     Dates: start: 201301
  2. ALBENDAZOLE [Concomitant]
     Active Substance: ALBENDAZOLE
     Dosage: ALBENDAZOLE TABLET 400MG STAT
     Dates: start: 20180518
  3. EMTRICITABINE [Suspect]
     Active Substance: EMTRICITABINE
     Indication: HIV infection
     Dates: start: 201301
  4. EFAVIRENZ [Suspect]
     Active Substance: EFAVIRENZ
     Indication: HIV infection
     Dates: start: 201301
  5. OMEPRAZOLE [Suspect]
     Active Substance: OMEPRAZOLE
     Indication: Peptic ulcer
     Dosage: OMEPRAZOLE CAPSULES 20 MG TWICE DAILY FOR 2 WEEKS
     Dates: start: 2015

REACTIONS (2)
  - Optic neuritis [Recovering/Resolving]
  - Vitamin B12 deficiency [Recovering/Resolving]

NARRATIVE: CASE EVENT DATE: 20180602
